FAERS Safety Report 6222479-5 (Version None)
Quarter: 2009Q2

REPORT INFORMATION
  Report Type: 
  Country: None (occurrence: None)
  Receive Date: 20090608
  Receipt Date: 20090601
  Transmission Date: 20091009
  Serious: Yes (Other)
  Sender: FDA-Public Use
  Company Number: US-GENENTECH-284200

PATIENT

DRUGS (5)
  1. BLINDED BEVACIZUMAB [Suspect]
     Indication: OVARIAN CANCER
     Dosage: 15 MG/KG, UNK
     Route: 042
     Dates: start: 20081216
  2. BLINDED PLACEBO [Suspect]
     Indication: OVARIAN CANCER
     Dosage: 15 MG/KG, UNK
     Route: 042
     Dates: start: 20081216
  3. PACLITAXEL [Suspect]
     Indication: OVARIAN CANCER
     Dosage: 175 MG/M2, UNK
     Route: 042
     Dates: start: 20081216
  4. CARBOPLATIN [Suspect]
     Indication: OVARIAN CANCER
     Dosage: 6 AUC, UNK
     Route: 042
     Dates: start: 20081216
  5. DOCETAXEL [Suspect]
     Indication: OVARIAN CANCER
     Dosage: 75 MG/M2, UNK
     Route: 042
     Dates: start: 20081216

REACTIONS (1)
  - HYPOALBUMINAEMIA [None]
